FAERS Safety Report 6429291-2 (Version None)
Quarter: 2009Q4

REPORT INFORMATION
  Report Type: 
  Country: None (occurrence: None)
  Receive Date: 20091105
  Receipt Date: 20091102
  Transmission Date: 20100525
  Serious: Yes (Death)
  Sender: FDA-Public Use
  Company Number: PHHY2009GB44068

PATIENT
  Sex: Male

DRUGS (6)
  1. CLOZARIL [Suspect]
     Indication: PARANOIA
     Dosage: 25 MG, BID
     Route: 048
     Dates: start: 20090817
  2. CLOZARIL [Suspect]
     Indication: HALLUCINATION
  3. CLOZARIL [Suspect]
     Indication: DELUSION
  4. CITALOPRAM HYDROBROMIDE [Concomitant]
     Dosage: 20 MG, UNK
     Dates: start: 20090801
  5. MADOPAR [Concomitant]
     Indication: PARKINSON'S DISEASE
     Dosage: 125 MG, QDS
  6. DIAZEPAM [Concomitant]
     Indication: ANXIETY
     Dosage: UNK
     Dates: start: 20090801

REACTIONS (1)
  - COMPLETED SUICIDE [None]
